FAERS Safety Report 6229654-4 (Version None)
Quarter: 2009Q2

REPORT INFORMATION
  Report Type: 
  Country: None (occurrence: None)
  Receive Date: 20090615
  Receipt Date: 20090609
  Transmission Date: 20091009
  Serious: Yes (Other)
  Sender: FDA-Public Use
  Company Number: B0574880A

PATIENT
  Sex: Female

DRUGS (2)
  1. VALTREX [Suspect]
     Indication: HERPES SIMPLEX
     Dosage: 500MG PER DAY
     Route: 048
     Dates: start: 20090514, end: 20090514
  2. AZUNOL [Concomitant]
     Dosage: .2G PER DAY
     Route: 061
     Dates: start: 20090514

REACTIONS (11)
  - ABDOMINAL PAIN [None]
  - ALTERED STATE OF CONSCIOUSNESS [None]
  - ANAPHYLACTIC REACTION [None]
  - ANAPHYLACTOID SHOCK [None]
  - DEPRESSED LEVEL OF CONSCIOUSNESS [None]
  - DIZZINESS [None]
  - DYSPNOEA [None]
  - HYPOTENSION [None]
  - NAUSEA [None]
  - RESTLESSNESS [None]
  - VOMITING [None]
